FAERS Safety Report 10140697 (Version 4)
Quarter: 2015Q1

REPORT INFORMATION
  Report Type: Report from Study
  Country: US (occurrence: US)
  Receive Date: 20140429
  Receipt Date: 20150130
  Transmission Date: 20150720
  Serious: Yes (Hospitalization, Other)
  Sender: FDA-Public Use
  Company Number: PHEH2014US008260

PATIENT
  Age: 13 Year
  Sex: Female
  Weight: 37.7 kg

DRUGS (10)
  1. CEFRADINE [Concomitant]
     Active Substance: CEPHRADINE
     Indication: SINUS OPERATION
  2. LINEZOLID. [Concomitant]
     Active Substance: LINEZOLID
     Indication: SINUS OPERATION
     Dosage: UNK
     Route: 042
     Dates: start: 20141212, end: 20141226
  3. TOBRA//TOBRAMYCIN [Concomitant]
     Indication: SINUS OPERATION
  4. TOBI [Suspect]
     Active Substance: TOBRAMYCIN
     Indication: PSEUDOMONAS INFECTION
  5. CEFRADINE [Concomitant]
     Active Substance: CEPHRADINE
     Indication: INFECTIVE PULMONARY EXACERBATION OF CYSTIC FIBROSIS
     Dosage: UNK
     Route: 042
     Dates: start: 20141212, end: 20141226
  6. TOBI PODHALER [Suspect]
     Active Substance: TOBRAMYCIN
     Indication: PSEUDOMONAS INFECTION
     Dosage: 28 MG, BID
     Route: 055
     Dates: start: 20121211
  7. TOBI [Suspect]
     Active Substance: TOBRAMYCIN
     Indication: CYSTIC FIBROSIS
     Dosage: 300 OT
     Route: 065
  8. LINEZOLID. [Concomitant]
     Active Substance: LINEZOLID
     Indication: INFECTIVE PULMONARY EXACERBATION OF CYSTIC FIBROSIS
  9. TOBRA//TOBRAMYCIN [Concomitant]
     Indication: INFECTIVE PULMONARY EXACERBATION OF CYSTIC FIBROSIS
     Dosage: EVERY 8 HOURS
     Route: 042
     Dates: start: 20141212, end: 20141226
  10. TOBI PODHALER [Suspect]
     Active Substance: TOBRAMYCIN
     Indication: CYSTIC FIBROSIS
     Dosage: 112 MG, BID
     Route: 055

REACTIONS (7)
  - Aspiration [Unknown]
  - Cystic fibrosis [Unknown]
  - Forced expiratory volume decreased [Not Recovered/Not Resolved]
  - Condition aggravated [Unknown]
  - Burkholderia cepacia complex infection [Unknown]
  - Oxygen saturation decreased [Unknown]
  - Underweight [Unknown]

NARRATIVE: CASE EVENT DATE: 20140420
